FAERS Safety Report 23559094 (Version 2)
Quarter: 2024Q1

REPORT INFORMATION
  Report Type: Spontaneous
  Country: US (occurrence: US)
  Receive Date: 20240223
  Receipt Date: 20240228
  Transmission Date: 20240410
  Serious: No
  Sender: FDA-Public Use
  Company Number: US-PFIZER INC-PV202400024664

PATIENT
  Age: 65 Year
  Sex: Male
  Weight: 99.8 kg

DRUGS (2)
  1. INLYTA [Suspect]
     Active Substance: AXITINIB
     Indication: Renal cell carcinoma
     Dosage: TAKE 5 MG BY MOUTH TWICE DAILY
     Route: 048
  2. NITROGLYCERIN [Concomitant]
     Active Substance: NITROGLYCERIN
     Indication: Chest pain
     Dosage: PLACE 1 TABLET (0.4 MG TOTAL) UNDER THE TONGUE EVERY 5 MINUTES AS NEEDED
     Route: 060

REACTIONS (1)
  - Normocytic anaemia [Unknown]
